FAERS Safety Report 9126879 (Version 2)
Quarter: 2014Q1

REPORT INFORMATION
  Report Type: Spontaneous
  Country: IT (occurrence: IT)
  Receive Date: 20130228
  Receipt Date: 20140312
  Transmission Date: 20141002
  Serious: Yes (Death, Other)
  Sender: FDA-Public Use
  Company Number: IT-PFIZER INC-2013070561

PATIENT
  Age: 56 Year
  Sex: Male

DRUGS (3)
  1. SUTENT [Suspect]
     Indication: RENAL CANCER
     Dosage: 50 MG DAILY CYCLIC (4 WEEKS ON/2 OFF)
     Route: 048
     Dates: start: 200807, end: 20081203
  2. SUTENT [Suspect]
     Dosage: UNK
     Dates: start: 2009, end: 2010
  3. SUTENT [Suspect]
     Dosage: UNK
     Dates: start: 2011

REACTIONS (5)
  - Disease progression [Fatal]
  - Renal cancer [Fatal]
  - Blood cholesterol increased [Recovered/Resolved]
  - Blood thyroid stimulating hormone increased [Recovered/Resolved]
  - Blood triglycerides increased [Recovered/Resolved]
